FAERS Safety Report 24349400 (Version 3)
Quarter: 2024Q4

REPORT INFORMATION
  Report Type: Spontaneous
  Country: FR (occurrence: FR)
  Receive Date: 20240923
  Receipt Date: 20241007
  Transmission Date: 20250115
  Serious: Yes (Life-Threatening, Hospitalization)
  Sender: SANDOZ
  Company Number: None

PATIENT
  Age: 35 Year
  Sex: Male
  Weight: 72 kg

DRUGS (5)
  1. BROMAZEPAM [Suspect]
     Active Substance: BROMAZEPAM
     Indication: Intentional overdose
     Dosage: 540 MG (90 TABLETS OF 6 MG)
     Route: 048
     Dates: start: 20240820, end: 20240820
  2. ACETAMINOPHEN [Suspect]
     Active Substance: ACETAMINOPHEN
     Indication: Intentional overdose
     Dosage: 16 G
     Route: 048
     Dates: start: 20240820, end: 20240820
  3. PAROXETINE [Suspect]
     Active Substance: PAROXETINE
     Indication: Intentional overdose
     Dosage: 560 MG (28 TABLETS OF 20 MG)
     Route: 048
     Dates: start: 20240820, end: 20240820
  4. TRIMEPRAZINE [Suspect]
     Active Substance: TRIMEPRAZINE
     Indication: Intentional overdose
     Dosage: A 40 ML BOTTLE
     Route: 048
     Dates: start: 20240820, end: 20240820
  5. LITHIUM [Concomitant]
     Active Substance: LITHIUM
     Indication: Product used for unknown indication
     Dosage: UNK
     Route: 065

REACTIONS (7)
  - Haemodynamic instability [Not Recovered/Not Resolved]
  - Respiratory failure [Not Recovered/Not Resolved]
  - Poisoning deliberate [Recovered/Resolved]
  - Pneumonia aspiration [Not Recovered/Not Resolved]
  - Nervous system disorder [Not Recovered/Not Resolved]
  - Acute kidney injury [Recovered/Resolved]
  - Vomiting [Unknown]

NARRATIVE: CASE EVENT DATE: 20240820
